FAERS Safety Report 6841508-9 (Version None)
Quarter: 2010Q3

REPORT INFORMATION
  Report Type: 
  Country: None (occurrence: None)
  Receive Date: 20100709
  Receipt Date: 20100629
  Transmission Date: 20110219
  Serious: Yes (Hospitalization)
  Sender: FDA-Public Use
  Company Number: 014747

PATIENT
  Sex: Male
  Weight: 84 kg

DRUGS (3)
  1. LACOSAMIDE [Suspect]
     Indication: CONVULSION
     Dosage: (150 MG ORAL)
     Route: 048
     Dates: start: 20100401, end: 20100501
  2. LAMICTAL [Concomitant]
  3. LIPITOR [Concomitant]

REACTIONS (5)
  - AMNESIA [None]
  - CONVULSION [None]
  - FEELING ABNORMAL [None]
  - LOSS OF CONSCIOUSNESS [None]
  - VISUAL IMPAIRMENT [None]
